FAERS Safety Report 22966238 (Version 7)
Quarter: 2024Q2

REPORT INFORMATION
  Report Type: Report from Study
  Country: AR (occurrence: AR)
  Receive Date: 20230921
  Receipt Date: 20240620
  Transmission Date: 20240716
  Serious: Yes (Hospitalization)
  Sender: FDA-Public Use
  Company Number: AR-002147023-NVSC2023AR203229

PATIENT
  Age: 0 Year
  Sex: Male
  Weight: 6.1 kg

DRUGS (5)
  1. ZOLGENSMA [Suspect]
     Active Substance: ONASEMNOGENE ABEPARVOVEC-XIOI
     Indication: Spinal muscular atrophy
     Dosage: 35.8 ML, ONCE/SINGLE (SOLE DOSE)
     Route: 042
     Dates: start: 20230706, end: 20230706
  2. PREDNISONE [Concomitant]
     Active Substance: PREDNISONE
     Indication: Product used for unknown indication
     Dosage: 1.5 MG/KG (1.4ML), QD (05 JUL)
     Route: 065
  3. PREDNISONE [Concomitant]
     Active Substance: PREDNISONE
     Dosage: 2.5 ML, QD
     Route: 065
  4. IRON [Concomitant]
     Active Substance: IRON
     Indication: Product used for unknown indication
     Dosage: 6 MG, Q24H (NASOGASTRIC TUBE)
     Route: 065
  5. SULFAMETHOXAZOLE\TRIMETHOPRIM [Concomitant]
     Active Substance: SULFAMETHOXAZOLE\TRIMETHOPRIM
     Indication: Prophylaxis
     Dosage: UNK
     Route: 065

REACTIONS (42)
  - Irritability [Unknown]
  - Illness [Unknown]
  - Platelet count increased [Unknown]
  - Flail chest [Unknown]
  - Erythema [Unknown]
  - Petechiae [Unknown]
  - Respiratory rate increased [Unknown]
  - Tachycardia [Unknown]
  - Urine abnormality [Unknown]
  - Proteinuria [Unknown]
  - Nitrite urine present [Unknown]
  - White blood cells urine positive [Unknown]
  - Escherichia urinary tract infection [Unknown]
  - Escherichia test positive [Unknown]
  - Polyuria [Unknown]
  - Diarrhoea [Unknown]
  - Hyperthermia [Unknown]
  - Increased upper airway secretion [Unknown]
  - Dehydration [Unknown]
  - Aspartate aminotransferase increased [Unknown]
  - Alanine aminotransferase increased [Unknown]
  - Respiratory distress [Unknown]
  - Respiratory tract infection [Unknown]
  - Parainfluenzae virus infection [Unknown]
  - Increased bronchial secretion [Unknown]
  - Dysphagia [Unknown]
  - Troponin increased [Not Recovered/Not Resolved]
  - Vomiting [Unknown]
  - Transaminases increased [Unknown]
  - COVID-19 [Unknown]
  - Pyrexia [Unknown]
  - Influenza [Unknown]
  - Crying [Unknown]
  - Rash morbilliform [Unknown]
  - Skin discolouration [Unknown]
  - Weight increased [Unknown]
  - Moaning [Unknown]
  - Heart rate increased [Unknown]
  - Pallor [Unknown]
  - Rash [Recovered/Resolved]
  - Abdominal discomfort [Recovering/Resolving]
  - Faeces soft [Recovering/Resolving]

NARRATIVE: CASE EVENT DATE: 20230706
